FAERS Safety Report 23134178 (Version 1)
Quarter: 2023Q4

REPORT INFORMATION
  Report Type: Report from Study
  Country: US (occurrence: US)
  Receive Date: 20231101
  Receipt Date: 20231101
  Transmission Date: 20240109
  Serious: Yes (Other)
  Sender: FDA-Public Use
  Company Number: US-MYLANLABS-2023M1114068

PATIENT
  Sex: Male
  Weight: 70.9 kg

DRUGS (3)
  1. AMNESTEEM [Suspect]
     Active Substance: ISOTRETINOIN
     Indication: Acne cystic
     Dosage: 20 MILLIGRAM, BID (START DATE: 20-JUN-2023)
     Route: 048
     Dates: end: 20230718
  2. ISOTRETINOIN [Suspect]
     Active Substance: ISOTRETINOIN
     Indication: Acne cystic
     Dosage: 40 MILLIGRAM, BID AT MEALTIME (START DATE 19-JUL-2023)
     Route: 048
     Dates: end: 20230828
  3. ISOTRETINOIN [Suspect]
     Active Substance: ISOTRETINOIN
     Indication: Acne cystic
     Dosage: 20 MILLIGRAM, BID (START DATE 18-APR-2023)
     Route: 048
     Dates: end: 20230619

REACTIONS (2)
  - Suicidal ideation [Not Recovered/Not Resolved]
  - Stress [Not Recovered/Not Resolved]

NARRATIVE: CASE EVENT DATE: 20230101
